FAERS Safety Report 10711671 (Version 2)
Quarter: 2022Q2

REPORT INFORMATION
  Report Type: Report from Study
  Country: US (occurrence: US)
  Receive Date: 20150114
  Receipt Date: 20220617
  Transmission Date: 20220721
  Serious: Yes (Other)
  Sender: FDA-Public Use
  Company Number: US-SHIRE-US201500143

PATIENT
  Sex: Female
  Weight: 104.3 kg

DRUGS (5)
  1. PENTASA [Suspect]
     Active Substance: MESALAMINE
     Indication: Product used for unknown indication
     Dosage: 1000 MILLIGRAM, BID
     Route: 048
     Dates: start: 2004
  2. PENTASA [Suspect]
     Active Substance: MESALAMINE
     Dosage: UNK UNK, BID
     Route: 048
  3. COLESTIPOL [Concomitant]
     Active Substance: COLESTIPOL
     Indication: Abnormal faeces
     Dosage: 2 GRAM, BID
     Route: 065
     Dates: start: 2008
  4. VITAMINS [Concomitant]
     Active Substance: VITAMINS
     Indication: Nutritional supplementation
     Dosage: 1 DOSAGE FORM, QD
     Route: 065
     Dates: start: 2004
  5. CALCIUM + VITAMIN D                /00944201/ [Concomitant]
     Indication: Nutritional supplementation
     Dosage: 600 MILLIGRAM, QD
     Route: 065
     Dates: start: 2004

REACTIONS (8)
  - Crohn^s disease [Recovered/Resolved]
  - Vitamin B12 decreased [Not Recovered/Not Resolved]
  - Anxiety [Not Recovered/Not Resolved]
  - Overweight [Not Recovered/Not Resolved]
  - Gastrooesophageal reflux disease [Not Recovered/Not Resolved]
  - Palpitations [Not Recovered/Not Resolved]
  - Product use in unapproved indication [Not Recovered/Not Resolved]
  - Product prescribing issue [Unknown]

NARRATIVE: CASE EVENT DATE: 20040101
